FAERS Safety Report 8437967-0 (Version None)
Quarter: 2012Q2

REPORT INFORMATION
  Report Type: 
  Country: None (occurrence: None)
  Receive Date: 20120614
  Receipt Date: 20120530
  Transmission Date: 20120825
  Serious: No
  Sender: FDA-Public Use
  Company Number: US-AMGEN-USASP2012027648

PATIENT
  Age: 59 Year
  Sex: Male
  Weight: 63.946 kg

DRUGS (19)
  1. CRESTOR [Concomitant]
  2. PLAVIX [Concomitant]
  3. ERGOCALCIFEROL [Concomitant]
  4. FISH OIL [Concomitant]
  5. LISINOPRIL [Concomitant]
  6. PREDNISONE TAB [Concomitant]
  7. CALCIUM CARBONATE [Concomitant]
  8. ATENOLOL [Concomitant]
  9. CYCLOBENZAPRINE [Concomitant]
  10. DIAZEPAM [Concomitant]
  11. SPIRIVA [Concomitant]
  12. CLOBETASOL PROPIONATE [Concomitant]
  13. LANSOPRAZOLE [Concomitant]
  14. NASONEX [Concomitant]
  15. PROLIA [Suspect]
     Indication: OSTEOPOROSIS POSTMENOPAUSAL
     Dosage: 60 MG, Q6MO
     Route: 058
     Dates: start: 20110527, end: 20111212
  16. AMLODIPINE [Concomitant]
  17. MULTI-VITAMINS [Concomitant]
  18. ADVAIR DISKUS 100/50 [Concomitant]
  19. PROAIR HFA [Concomitant]

REACTIONS (3)
  - SKIN EXFOLIATION [None]
  - BONE PAIN [None]
  - CONSTIPATION [None]
